FAERS Safety Report 8552342-6 (Version None)
Quarter: 2012Q3

REPORT INFORMATION
  Report Type: 
  Country: None (occurrence: None)
  Receive Date: 20120731
  Receipt Date: 20120724
  Transmission Date: 20120928
  Serious: Yes (Life-Threatening)
  Sender: FDA-Public Use
  Company Number: GR-CELGENEUS-066-C5013-12072455

PATIENT
  Sex: Female
  Weight: 68 kg

DRUGS (7)
  1. ERYTHROPOETIN [Concomitant]
     Dosage: 5714.2857 IU (INTERNATIONAL UNIT)
     Route: 058
     Dates: start: 20120117
  2. NEUPOGEN [Concomitant]
     Indication: LEUKOPENIA
     Route: 058
     Dates: start: 20120117
  3. RED BLOOD CELLS [Concomitant]
     Route: 041
     Dates: start: 20120117
  4. LENALIDOMIDE [Suspect]
     Indication: MULTIPLE MYELOMA
     Route: 048
     Dates: start: 20080722, end: 20100804
  5. MELPHALAN HYDROCHLORIDE [Suspect]
     Indication: MULTIPLE MYELOMA
     Route: 065
     Dates: start: 20080722, end: 20090724
  6. LENALIDOMIDE [Suspect]
     Route: 048
  7. PREDNISONE TAB [Suspect]
     Indication: MULTIPLE MYELOMA
     Route: 065
     Dates: start: 20080722, end: 20090724

REACTIONS (1)
  - MYELODYSPLASTIC SYNDROME [None]
